FAERS Safety Report 24254775 (Version 2)
Quarter: 2024Q4

REPORT INFORMATION
  Report Type: Spontaneous
  Country: US (occurrence: US)
  Receive Date: 20240827
  Receipt Date: 20241008
  Transmission Date: 20250115
  Serious: No
  Sender: IPSEN
  Company Number: US-IPSEN Group, Research and Development-2024-16518

PATIENT
  Age: 38 Year
  Sex: Female

DRUGS (4)
  1. DYSPORT [Suspect]
     Active Substance: ABOBOTULINUMTOXINA
     Indication: Skin wrinkling
     Dosage: (GLABELLA 23, FRONTALIS 15 (1:1 RECON), OBICULARIS OCULI 16 (1:2.5 RECON)
     Route: 030
     Dates: start: 202407, end: 202407
  2. DYSPORT [Suspect]
     Active Substance: ABOBOTULINUMTOXINA
     Indication: Skin wrinkling
     Dosage: GLABELLA 40,FRONTALIS 30 AND OBICULARIS OCULI 26
     Route: 030
     Dates: start: 20240725, end: 20240725
  3. DYSPORT [Suspect]
     Active Substance: ABOBOTULINUMTOXINA
     Indication: Skin wrinkling
  4. DYSPORT [Suspect]
     Active Substance: ABOBOTULINUMTOXINA
     Indication: Off label use

REACTIONS (7)
  - Injection site mass [Recovered/Resolved]
  - Injection site erythema [Recovered/Resolved]
  - Injection site inflammation [Recovered/Resolved]
  - Drug ineffective [Unknown]
  - Off label use [Unknown]
  - Wrong technique in product usage process [Unknown]
  - Off label use [Unknown]

NARRATIVE: CASE EVENT DATE: 20240701
